FAERS Safety Report 26111253 (Version 1)
Quarter: 2025Q4

REPORT INFORMATION
  Report Type: Other
  Country: EU (occurrence: EU)
  Receive Date: 20251202
  Receipt Date: 20251202
  Transmission Date: 20260118
  Serious: Yes (Hospitalization)
  Sender: ZYDUS PHARM
  Company Number: None

PATIENT

DRUGS (4)
  1. ACETAMINOPHEN\TRAMADOL [Suspect]
     Active Substance: ACETAMINOPHEN\TRAMADOL
     Indication: Migraine
     Dosage: 1 DOSAGE FORM, BID
     Route: 048
     Dates: start: 20150911, end: 20250923
  2. METAMIZOL [Suspect]
     Active Substance: METAMIZOLE SODIUM
     Indication: Migraine
     Dosage: 575 MILLIGRAM, BID
     Route: 048
     Dates: start: 20150625
  3. SUMATRIPTAN SUCCINATE [Suspect]
     Active Substance: SUMATRIPTAN SUCCINATE
     Indication: Migraine
     Dosage: 50 MILLIGRAM, QD
     Route: 048
     Dates: start: 20190211, end: 20250901
  4. NAPROXEN SODIUM [Suspect]
     Active Substance: NAPROXEN SODIUM
     Indication: Migraine
     Dosage: 550 MILLIGRAM, BID
     Route: 048
     Dates: start: 20240704, end: 20250923

REACTIONS (2)
  - Condition aggravated [Recovered/Resolved]
  - Medication overuse headache [Recovered/Resolved]

NARRATIVE: CASE EVENT DATE: 20250828
